FAERS Safety Report 9184990 (Version 1)
Quarter: 2013Q1

REPORT INFORMATION
  Report Type: Spontaneous
  Country: DE (occurrence: DE)
  Receive Date: 20130325
  Receipt Date: 20130325
  Transmission Date: 20140127
  Serious: Yes (Death)
  Sender: FDA-Public Use
  Company Number: DE-JNJFOC-20130310086

PATIENT
  Age: 73 Year
  Sex: Male
  Weight: 80 kg

DRUGS (10)
  1. XARELTO [Suspect]
     Indication: CEREBROVASCULAR ACCIDENT PROPHYLAXIS
     Route: 048
     Dates: end: 20130213
  2. XARELTO [Suspect]
     Indication: ATRIAL FIBRILLATION
     Route: 048
     Dates: end: 20130213
  3. EISENSULFAT [Concomitant]
     Route: 065
  4. DIGITOXIN [Concomitant]
     Route: 065
  5. SPIRONOLACTON [Concomitant]
     Route: 065
  6. OXIS [Concomitant]
     Route: 065
  7. KARVEA [Concomitant]
     Route: 065
  8. ALLOPURINOL [Concomitant]
     Route: 065
  9. PANTOPRAZOLE [Concomitant]
     Route: 065
  10. BISOPROLOL [Concomitant]
     Route: 065

REACTIONS (1)
  - Subdural haematoma [Fatal]
